FAERS Safety Report 6017674-4 (Version None)
Quarter: 2008Q4

REPORT INFORMATION
  Report Type: 
  Country: None (occurrence: None)
  Receive Date: 20081223
  Receipt Date: 20081211
  Transmission Date: 20090506
  Serious: Yes (Disabling)
  Sender: FDA-Public Use
  Company Number: GB-ROCHE-602540

PATIENT
  Age: 71 Year
  Sex: Female

DRUGS (4)
  1. BONIVA [Suspect]
     Indication: OSTEOPOROSIS
     Route: 042
  2. CALCIUM PHOSPHATE/ERGOCALCIFEROL [Concomitant]
     Indication: OSTEOPOROSIS
     Dosage: DOSE: 1 DF DRUG : CALCIUM AND VITAMIN D
     Route: 048
  3. LEVOTHYROXINE SODIUM [Concomitant]
     Indication: HYPOTHYROIDISM
     Route: 048
  4. TEGRETOL [Concomitant]
     Indication: TRIGEMINAL NEURALGIA
     Route: 048

REACTIONS (2)
  - AURA [None]
  - HEADACHE [None]
